FAERS Safety Report 9695669 (Version 1)
Quarter: 2013Q4

REPORT INFORMATION
  Report Type: Spontaneous
  Country: CL (occurrence: CL)
  Receive Date: 20131119
  Receipt Date: 20131119
  Transmission Date: 20140711
  Serious: Yes (Other)
  Sender: FDA-Public Use
  Company Number: CL-PFIZER INC-2013326274

PATIENT
  Age: 98 Year
  Sex: Male

DRUGS (6)
  1. XALATAN [Suspect]
     Indication: GLAUCOMA
     Dosage: 1 DROP EACH EYE, UNK
     Route: 047
     Dates: start: 2007
  2. TIMOLOL [Concomitant]
     Dosage: UNK
  3. FUROSEMIDE [Concomitant]
     Dosage: UNK
  4. NIFEDIPINE [Concomitant]
     Dosage: UNK
  5. ASPIRINA [Concomitant]
     Dosage: UNK
  6. ESCITALOPRAM [Concomitant]
     Dosage: UNK

REACTIONS (2)
  - Cataract [Not Recovered/Not Resolved]
  - Hypoacusis [Not Recovered/Not Resolved]
